FAERS Safety Report 8922605 (Version 1)
Quarter: 2012Q4

REPORT INFORMATION
  Report Type: 
  Country: US (occurrence: US)
  Receive Date: 20121123
  Receipt Date: 20121123
  Transmission Date: 20130627
  Serious: No
  Sender: FDA-Public Use
  Company Number: US-PFIZER INC-2012292120

PATIENT
  Sex: Female

DRUGS (3)
  1. CELEBREX [Suspect]
     Dosage: UNK
     Dates: start: 20061011, end: 20120822
  2. LIPITOR [Suspect]
     Dosage: UNK
     Dates: start: 20061011, end: 20120822
  3. XALATAN [Suspect]
     Dosage: UNK
     Dates: start: 20061011, end: 20120822

REACTIONS (1)
  - Hearing impaired [Unknown]
